FAERS Safety Report 5200257-3 (Version None)
Quarter: 2007Q1

REPORT INFORMATION
  Report Type: 
  Country: None (occurrence: None)
  Receive Date: 20070105
  Receipt Date: 20061228
  Transmission Date: 20070707
  Serious: Yes (Hospitalization)
  Sender: FDA-Public Use
  Company Number: CA-BOEHRINGER INGELHEIM PHARMACEUTICALS, INC.-2007-CN-00008CN

PATIENT
  Sex: Female

DRUGS (11)
  1. MICARDIS [Suspect]
     Indication: HYPERTENSION
     Dates: start: 20060630
  2. LANOXIN [Concomitant]
  3. PLAVIX [Concomitant]
  4. MOTRIN [Concomitant]
  5. ADVAIR DISKUS 100/50 [Concomitant]
  6. CRESTOR [Concomitant]
  7. METFORMIN HCL [Concomitant]
  8. METFORMIN HCL [Concomitant]
  9. SERC [Concomitant]
     Indication: DIZZINESS
  10. ROBAXACET [Concomitant]
     Indication: BACK PAIN
  11. OXYCODONE HYDROCHLORIDE AND ACETAMINOPHEN [Concomitant]

REACTIONS (5)
  - ANOREXIA [None]
  - BLOOD PRESSURE INADEQUATELY CONTROLLED [None]
  - CONFUSIONAL STATE [None]
  - HEART RATE INCREASED [None]
  - NEURITIS [None]
